FAERS Safety Report 9342263 (Version 1)
Quarter: 2013Q2

REPORT INFORMATION
  Report Type: Spontaneous
  Country: GB (occurrence: None)
  Receive Date: 20130607
  Receipt Date: 20130607
  Transmission Date: 20140414
  Serious: Yes (Other)
  Sender: FDA-Public Use
  Company Number: AUR-APL-2013-04622

PATIENT
  Sex: Male

DRUGS (3)
  1. RIBAVIRIN (RIBAVIRIN) [Suspect]
     Indication: HEPATITIS C
  2. INCIVO (TELAPREVIR) [Suspect]
     Indication: HEPATITIS C
     Dosage: 2250 MG (750 MG, 3 IN 1 D) UNK
  3. PEGINTERFERON ALFA [Suspect]
     Indication: HEPATITIS C

REACTIONS (6)
  - Rash [None]
  - Blood albumin decreased [None]
  - Anaemia [None]
  - Lethargy [None]
  - Fatigue [None]
  - Nausea [None]
